FAERS Safety Report 7925957-3 (Version None)
Quarter: 2011Q4

REPORT INFORMATION
  Report Type: 
  Country: None (occurrence: None)
  Receive Date: 20111118
  Receipt Date: 20110415
  Transmission Date: 20120403
  Serious: No
  Sender: FDA-Public Use
  Company Number: US-AMGEN-USASP2011020058

PATIENT
  Age: 35 Year
  Sex: Female
  Weight: 48.98 kg

DRUGS (3)
  1. ENBREL [Suspect]
     Indication: PSORIATIC ARTHROPATHY
     Dosage: 50 MG, QWK
     Dates: start: 20110101
  2. ENBREL [Suspect]
     Indication: PSORIASIS
     Dosage: UNK
  3. ENBREL [Suspect]
     Indication: RHEUMATOID ARTHRITIS
     Dosage: 50 MG, QWK
     Dates: start: 20110105

REACTIONS (10)
  - TENDON PAIN [None]
  - INJECTION SITE PAIN [None]
  - PYREXIA [None]
  - MYALGIA [None]
  - CONTUSION [None]
  - INJECTION SITE WARMTH [None]
  - CHILLS [None]
  - INFLUENZA [None]
  - INJECTION SITE SWELLING [None]
  - INJECTION SITE HAEMATOMA [None]
